FAERS Safety Report 20432580 (Version 5)
Quarter: 2022Q3

REPORT INFORMATION
  Report Type: Spontaneous
  Country: JP (occurrence: JP)
  Receive Date: 20220204
  Receipt Date: 20220722
  Transmission Date: 20221027
  Serious: Yes (Death)
  Sender: FDA-Public Use
  Company Number: JP-Eisai-202110916_LEN-EC_P_1

PATIENT
  Age: 62 Year
  Sex: Female

DRUGS (7)
  1. LENVIMA [Suspect]
     Active Substance: LENVATINIB
     Indication: Endometrial cancer
     Route: 048
     Dates: start: 20220111, end: 2022
  2. LENVIMA [Suspect]
     Active Substance: LENVATINIB
     Dosage: DOSE AND FREQUENCY UNKNOWN
     Route: 048
     Dates: start: 20220127, end: 20220131
  3. KEYTRUDA [Suspect]
     Active Substance: PEMBROLIZUMAB
     Indication: Endometrial cancer
     Route: 041
     Dates: start: 20220111
  4. WARFARIN [Suspect]
     Active Substance: WARFARIN
     Indication: Cerebral infarction
     Dosage: DOSE AND FREQUENCY UNKNOWN
     Route: 048
  5. WARFARIN [Suspect]
     Active Substance: WARFARIN
     Indication: Thrombophlebitis migrans
  6. AMLODIPINE [Concomitant]
     Active Substance: AMLODIPINE BESYLATE
     Indication: Hypertension
     Dosage: FREQUENCY UNKNOWN
     Route: 065
     Dates: start: 20220114
  7. NIFEDIPINE [Concomitant]
     Active Substance: NIFEDIPINE
     Indication: Hypertension
     Dosage: FREQUENCY UNKNOWN
     Route: 065
     Dates: start: 20220125

REACTIONS (11)
  - Brain herniation [Fatal]
  - Performance status decreased [Unknown]
  - Anaemia [Unknown]
  - Cerebral haemorrhage [Fatal]
  - Thyroiditis [Unknown]
  - Hypertension [Recovering/Resolving]
  - Dysphonia [Not Recovered/Not Resolved]
  - Visual field defect [Recovered/Resolved]
  - Fatigue [Not Recovered/Not Resolved]
  - Malaise [Not Recovered/Not Resolved]
  - Platelet count decreased [Unknown]

NARRATIVE: CASE EVENT DATE: 20220101
